FAERS Safety Report 16987251 (Version 1)
Quarter: 2019Q4

REPORT INFORMATION
  Report Type: Spontaneous
  Country: US (occurrence: US)
  Receive Date: 20191104
  Receipt Date: 20191104
  Transmission Date: 20200122
  Serious: No
  Sender: FDA-Public Use
  Company Number: US-AUROBINDO-AUR-APL-2018-059154

PATIENT

DRUGS (1)
  1. METOPROLOL TARTRATE FILM COATED TABLETS USP 50 MG [Suspect]
     Active Substance: METOPROLOL TARTRATE
     Indication: PRODUCT USED FOR UNKNOWN INDICATION
     Route: 065

REACTIONS (11)
  - Dyspnoea [Unknown]
  - Blood pressure increased [Unknown]
  - Hypoaesthesia [Unknown]
  - Tremor [Unknown]
  - Product substitution issue [Unknown]
  - Nasopharyngitis [Unknown]
  - Headache [Unknown]
  - Chest discomfort [Unknown]
  - Hypoaesthesia oral [Unknown]
  - Heart rate irregular [Unknown]
  - Nausea [Unknown]
